FAERS Safety Report 9197998 (Version 1)
Quarter: 2013Q1

REPORT INFORMATION
  Report Type: Spontaneous
  Country: US (occurrence: US)
  Receive Date: 20130328
  Receipt Date: 20130328
  Transmission Date: 20140127
  Serious: No
  Sender: FDA-Public Use
  Company Number: US-UPSHER-SMITH LABORATORIES, INC.-13001006

PATIENT
  Sex: Female

DRUGS (1)
  1. JANTOVEN [Suspect]
     Indication: MITRAL VALVE REPLACEMENT
     Dosage: 5 MG, QD
     Route: 048
     Dates: start: 201303

REACTIONS (1)
  - Cystitis [Not Recovered/Not Resolved]
